FAERS Safety Report 19939051 (Version 1)
Quarter: 2021Q4

REPORT INFORMATION
  Report Type: Spontaneous
  Country: FI (occurrence: FI)
  Receive Date: 20211011
  Receipt Date: 20211011
  Transmission Date: 20220303
  Serious: Yes (Hospitalization, Other)
  Sender: FDA-Public Use
  Company Number: None

PATIENT
  Age: 53 Year
  Sex: Female

DRUGS (1)
  1. DUPIXENT [Suspect]
     Active Substance: DUPILUMAB
     Indication: Nasal polyps
     Route: 058
     Dates: start: 20210610, end: 20210707

REACTIONS (12)
  - Granulomatous dermatitis [Unknown]
  - Skin texture abnormal [Unknown]
  - Folliculitis [Unknown]
  - Rosacea [Unknown]
  - Leukocytosis [Unknown]
  - Skin induration [Unknown]
  - Cutaneous vasculitis [Unknown]
  - Eyelid rash [Unknown]
  - Subcutaneous abscess [Unknown]
  - Rash [Unknown]
  - Angioedema [Unknown]
  - Eosinophilia [Unknown]

NARRATIVE: CASE EVENT DATE: 20210723
